FAERS Safety Report 8932928 (Version 1)
Quarter: 2012Q4

REPORT INFORMATION
  Report Type: 
  Country: US (occurrence: US)
  Receive Date: 20121129
  Receipt Date: 20121129
  Transmission Date: 20130627
  Serious: Yes (Other)
  Sender: FDA-Public Use
  Company Number: US-JNJFOC-20121109709

PATIENT
  Age: 62 None
  Sex: Female
  Weight: 107.5 kg

DRUGS (1)
  1. SIMPONI [Suspect]
     Indication: PSORIATIC ARTHROPATHY
     Route: 058

REACTIONS (4)
  - Colitis [Recovered/Resolved]
  - Syringe issue [Unknown]
  - Drug dose omission [Not Recovered/Not Resolved]
  - Influenza [Recovered/Resolved]
